FAERS Safety Report 7413224-6 (Version None)
Quarter: 2011Q2

REPORT INFORMATION
  Report Type: 
  Country: None (occurrence: None)
  Receive Date: 20110413
  Receipt Date: 20110407
  Transmission Date: 20111010
  Serious: Yes (Hospitalization)
  Sender: FDA-Public Use
  Company Number: JP-CEPHALON-2011001799

PATIENT
  Sex: Male
  Weight: 55 kg

DRUGS (10)
  1. BENDAMUSTINE HCL [Suspect]
     Indication: MANTLE CELL LYMPHOMA
     Route: 042
     Dates: start: 20101224, end: 20110209
  2. METHOTREXATE [Concomitant]
     Dates: start: 20101227
  3. NIFEDIPINE [Concomitant]
  4. CERNITOL [Concomitant]
  5. LANSOPRAZOLE [Concomitant]
     Dates: start: 20101227
  6. NAFTOPIDIL [Concomitant]
  7. SENNOSIDE [Concomitant]
  8. GRANISETRON HCL [Concomitant]
     Dates: start: 20101224, end: 20110118
  9. ATORVASTATIN [Concomitant]
  10. ASPIRIN [Concomitant]
     Dates: start: 20101228

REACTIONS (2)
  - DRUG ERUPTION [None]
  - PYREXIA [None]
